FAERS Safety Report 19769199 (Version 1)
Quarter: 2021Q3

REPORT INFORMATION
  Report Type: Spontaneous
  Country: US (occurrence: US)
  Receive Date: 20210827
  Receipt Date: 20210827
  Transmission Date: 20211014
  Serious: Yes (Hospitalization)
  Sender: FDA-Public Use
  Company Number: None

PATIENT
  Sex: Female

DRUGS (1)
  1. IBRANCE [Suspect]
     Active Substance: PALBOCICLIB
     Indication: BREAST CANCER FEMALE
     Dosage: ?          OTHER FREQUENCY:28 DAY CYCLE ; 1 TABLET DAILY DAYS 1?21 OF 28 DAY CYCLE?
     Route: 048
     Dates: start: 20210617

REACTIONS (3)
  - Therapy interrupted [None]
  - White blood cell count decreased [None]
  - Colitis [None]
